FAERS Safety Report 19912196 (Version 1)
Quarter: 2021Q4

REPORT INFORMATION
  Report Type: Spontaneous
  Country: US (occurrence: US)
  Receive Date: 20211002
  Receipt Date: 20211002
  Transmission Date: 20220303
  Serious: Yes (Other)
  Sender: FDA-Public Use
  Company Number: None

PATIENT
  Age: 42 Year
  Sex: Male
  Weight: 63 kg

DRUGS (1)
  1. PROPECIA [Suspect]
     Active Substance: FINASTERIDE
     Indication: Alopecia
     Dosage: ?          QUANTITY:1 TABLET(S);
     Route: 048
     Dates: start: 20060106, end: 20061220

REACTIONS (6)
  - Insomnia [None]
  - Withdrawal syndrome [None]
  - Erectile dysfunction [None]
  - Libido decreased [None]
  - Panic attack [None]
  - Quality of life decreased [None]

NARRATIVE: CASE EVENT DATE: 20121212
